FAERS Safety Report 5746896-2 (Version None)
Quarter: 2008Q2

REPORT INFORMATION
  Report Type: 
  Country: None (occurrence: None)
  Receive Date: 20080522
  Receipt Date: 20080514
  Transmission Date: 20081010
  Serious: Yes (Death, Other)
  Sender: FDA-Public Use
  Company Number: NL-PFIZER INC-2008027704

PATIENT
  Sex: Male
  Weight: 100 kg

DRUGS (1)
  1. GENOTROPIN [Suspect]
     Indication: HYPOPITUITARISM
     Dates: start: 19980828, end: 20010430

REACTIONS (2)
  - MESOTHELIOMA [None]
  - METASTASES TO PERITONEUM [None]
